FAERS Safety Report 4498173-8 (Version None)
Quarter: 2004Q4

REPORT INFORMATION
  Report Type: 
  Country: None (occurrence: None)
  Receive Date: 20041110
  Receipt Date: 20041101
  Transmission Date: 20050328
  Serious: Yes (Disabling)
  Sender: FDA-Public Use
  Company Number: US-MERCK-0411USA00197

PATIENT
  Age: 81 Year
  Sex: Female

DRUGS (1)
  1. VIOXX [Suspect]
     Indication: ARTHRITIS
     Route: 048
     Dates: start: 20040513, end: 20040930

REACTIONS (4)
  - ASTHENIA [None]
  - CHEST PAIN [None]
  - DIZZINESS [None]
  - MUSCLE CRAMP [None]
